FAERS Safety Report 12266846 (Version 1)
Quarter: 2016Q2

REPORT INFORMATION
  Report Type: Spontaneous
  Country: US (occurrence: None)
  Receive Date: 20160413
  Receipt Date: 20160413
  Transmission Date: 20160815
  Serious: Yes (Disabling)
  Sender: FDA-Public Use
  Company Number: None

PATIENT
  Age: 63 Year
  Sex: Female
  Weight: 99.79 kg

DRUGS (3)
  1. ACETAMINOPHEN. [Concomitant]
     Active Substance: ACETAMINOPHEN
  2. ATENOLOL SANDOZ [Suspect]
     Active Substance: ATENOLOL
     Indication: HYPERTENSION
     Dosage: 25MG. 2  2/DAY
     Route: 048
     Dates: start: 20160203, end: 20160220
  3. COMPOUNDED HYDROCODON [Concomitant]

REACTIONS (5)
  - Insomnia [None]
  - Gait disturbance [None]
  - Rash [None]
  - Fatigue [None]
  - Pain [None]

NARRATIVE: CASE EVENT DATE: 20151101
